FAERS Safety Report 9783175 (Version 1)
Quarter: 2013Q4

REPORT INFORMATION
  Report Type: Spontaneous
  Country: US (occurrence: None)
  Receive Date: 20131223
  Receipt Date: 20131223
  Transmission Date: 20140711
  Serious: Yes (Other)
  Sender: FDA-Public Use
  Company Number: EUS-2012-00010

PATIENT
  Age: 8 Year
  Sex: Female

DRUGS (4)
  1. ERWINASE [Suspect]
     Indication: ACUTE LYMPHOCYTIC LEUKAEMIA
     Dosage: (26000 IU), INTRAUSCULAR
     Dates: start: 20111118, end: 20111121
  2. DEXAMETHASONE (DEXAMETHASONE) [Concomitant]
  3. PREDNISONE (PREDNISONE) [Concomitant]
  4. HYDROCOTISONE (HYDROCORTISONE) [Concomitant]

REACTIONS (1)
  - Contusion [None]
